FAERS Safety Report 7602994-X (Version None)
Quarter: 2011Q3

REPORT INFORMATION
  Report Type: 
  Country: None (occurrence: None)
  Receive Date: 20110711
  Receipt Date: 20110711
  Transmission Date: 20111222
  Serious: Yes (Other)
  Sender: FDA-Public Use
  Company Number: None

PATIENT
  Age: 25 Year
  Sex: Male
  Weight: 72.5755 kg

DRUGS (2)
  1. PROSCAR [Suspect]
     Indication: ANDROGENETIC ALOPECIA
     Dosage: 1.25MG DAILY PO
     Route: 048
     Dates: start: 20041101, end: 20051001
  2. FINASTERIDE [Concomitant]

REACTIONS (54)
  - PENIS DISORDER [None]
  - PREMATURE EJACULATION [None]
  - FEMINISATION ACQUIRED [None]
  - MUSCLE ATROPHY [None]
  - TONGUE DISORDER [None]
  - PARAESTHESIA OF GENITAL MALE [None]
  - PENILE CURVATURE [None]
  - COGNITIVE DISORDER [None]
  - MENTAL IMPAIRMENT [None]
  - CIRCADIAN RHYTHM SLEEP DISORDER [None]
  - DISSOCIATION [None]
  - ANHEDONIA [None]
  - ANXIETY [None]
  - FIBROSIS [None]
  - SEMEN VOLUME DECREASED [None]
  - MUSCLE TWITCHING [None]
  - MUSCLE CONTRACTIONS INVOLUNTARY [None]
  - ASTHENIA [None]
  - EXERCISE TOLERANCE DECREASED [None]
  - BODY TEMPERATURE DECREASED [None]
  - SEMEN VISCOSITY DECREASED [None]
  - ORGASMIC SENSATION DECREASED [None]
  - DEPRESSION [None]
  - SCROTAL DISORDER [None]
  - SEMEN DISCOLOURATION [None]
  - BRADYPHRENIA [None]
  - DYSPHEMIA [None]
  - DEPENDENT PERSONALITY DISORDER [None]
  - MIDDLE INSOMNIA [None]
  - WEIGHT INCREASED [None]
  - BLOOD FOLLICLE STIMULATING HORMONE DECREASED [None]
  - ERECTILE DYSFUNCTION [None]
  - FATIGUE [None]
  - MEMORY IMPAIRMENT [None]
  - FLAT AFFECT [None]
  - LOSS OF DREAMING [None]
  - BLOOD TESTOSTERONE DECREASED [None]
  - SECONDARY HYPOGONADISM [None]
  - LOSS OF LIBIDO [None]
  - DISTURBANCE IN SEXUAL AROUSAL [None]
  - ATROPHY [None]
  - APATHY [None]
  - DISTURBANCE IN ATTENTION [None]
  - QUALITY OF LIFE DECREASED [None]
  - MALE SEXUAL DYSFUNCTION [None]
  - GYNAECOMASTIA [None]
  - DRY SKIN [None]
  - DYSARTHRIA [None]
  - RAPID EYE MOVEMENTS SLEEP ABNORMAL [None]
  - GENITAL HYPOAESTHESIA [None]
  - POOR QUALITY SLEEP [None]
  - AFFECTIVE DISORDER [None]
  - PANIC ATTACK [None]
  - BLOOD LUTEINISING HORMONE DECREASED [None]
